FAERS Safety Report 5143197-0 (Version None)
Quarter: 2006Q4

REPORT INFORMATION
  Report Type: 
  Country: None (occurrence: None)
  Receive Date: 20061031
  Receipt Date: 20061031
  Transmission Date: 20070319
  Serious: Yes (Life-Threatening, Hospitalization, Disabling)
  Sender: FDA-Public Use
  Company Number: None

PATIENT
  Age: 54 Year
  Sex: Male
  Weight: 73.5 kg

DRUGS (8)
  1. LINEZOLID [Suspect]
     Indication: ENTEROCOCCAL INFECTION
     Dosage: 600 MG BID PO
     Route: 048
     Dates: start: 20060830, end: 20060911
  2. SERTRALINE [Suspect]
     Indication: DEPRESSION
     Dosage: 50-MG DAILY PO
     Route: 048
  3. MYFORTIC [Concomitant]
  4. NEXIUM [Concomitant]
  5. PROGRAF [Concomitant]
  6. ZOLOFT [Concomitant]
  7. BACTRIM DS [Concomitant]
  8. AMOXICILLIN [Concomitant]

REACTIONS (10)
  - AGGRESSION [None]
  - CANDIDIASIS [None]
  - DISORIENTATION [None]
  - ENTEROCOCCAL INFECTION [None]
  - HALLUCINATION [None]
  - MENTAL STATUS CHANGES [None]
  - MUSCLE CONTRACTIONS INVOLUNTARY [None]
  - SEROTONIN SYNDROME [None]
  - SPEECH DISORDER [None]
  - TREMOR [None]
